FAERS Safety Report 7496608-X (Version None)
Quarter: 2011Q2

REPORT INFORMATION
  Report Type: 
  Country: None (occurrence: None)
  Receive Date: 20110523
  Receipt Date: 20110519
  Transmission Date: 20111010
  Serious: Yes (Disabling)
  Sender: FDA-Public Use
  Company Number: IT-GILEAD-2011-0037803

PATIENT
  Sex: Male

DRUGS (4)
  1. IMMUNE GLOBULIN NOS [Concomitant]
     Indication: HEPATITIS B
  2. CYCLOSPORINE [Concomitant]
     Indication: HEPATITIS B
  3. VIREAD [Suspect]
     Indication: HEPATITIS B
     Route: 048
     Dates: start: 20110201, end: 20110314
  4. LAMIVUDINE [Concomitant]
     Indication: HEPATITIS B

REACTIONS (1)
  - DIPLOPIA [None]
